FAERS Safety Report 13998521 (Version 1)
Quarter: 2017Q3

REPORT INFORMATION
  Report Type: Spontaneous
  Country: US (occurrence: US)
  Receive Date: 20170922
  Receipt Date: 20170922
  Transmission Date: 20171128
  Serious: Yes (Disabling)
  Sender: FDA-Public Use
  Company Number: US-GE HEALTHCARE LIFE SCIENCES-OSCN-PR-0805S-0287

PATIENT
  Age: 45 Year
  Sex: Female
  Weight: 52 kg

DRUGS (26)
  1. MULTIHANCE [Suspect]
     Active Substance: GADOBENATE DIMEGLUMINE
     Indication: END STAGE RENAL DISEASE
     Dosage: 20 MILLIGRAM/MILLILITERS, SINGLE
     Dates: start: 20060202, end: 20060202
  2. HEPARIN [Concomitant]
     Active Substance: HEPARIN SODIUM
  3. GENTAMYCIN [Concomitant]
     Active Substance: GENTAMICIN
  4. EPOGEN [Concomitant]
     Active Substance: ERYTHROPOIETIN
  5. NEPHROCAPS [Concomitant]
     Active Substance: ASCORBIC ACID\BIOTIN\CYANOCOBALAMIN\FOLIC ACID\NIACIN\PANTOTHENIC ACID\PYRIDOXINE\RIBOFLAVIN\THIAMINE
  6. SOLU-CORTEF [Concomitant]
     Active Substance: HYDROCORTISONE SODIUM SUCCINATE
  7. MAGNEVIST [Suspect]
     Active Substance: GADOPENTETATE DIMEGLUMINE
     Dosage: 28 MILLIGRAM/MILLILITERS, SINGLE
     Dates: start: 20041220, end: 20041220
  8. RENAGEL [Concomitant]
     Active Substance: SEVELAMER HYDROCHLORIDE
  9. PROAMATINE [Concomitant]
     Active Substance: MIDODRINE HYDROCHLORIDE
  10. PROHANCE [Suspect]
     Active Substance: GADOTERIDOL
     Dosage: , SINGLE
     Dates: start: 20070925, end: 20070925
  11. PROHANCE [Suspect]
     Active Substance: GADOTERIDOL
     Dosage: UNK
  12. PLAQUENIL [Concomitant]
     Active Substance: HYDROXYCHLOROQUINE SULFATE
  13. PREDNISONE. [Concomitant]
     Active Substance: PREDNISONE
  14. VANCOMYCIN [Concomitant]
     Active Substance: VANCOMYCIN
  15. MAGNEVIST [Suspect]
     Active Substance: GADOPENTETATE DIMEGLUMINE
     Indication: HYPOTHALAMO-PITUITARY DISORDER
     Dosage: 30 MILLIGRAM/MILLILITERS, SINGLE
     Dates: start: 20050405, end: 20050405
  16. LOPRESSOR [Concomitant]
     Active Substance: METOPROLOL TARTRATE
  17. COUMADIN [Concomitant]
     Active Substance: WARFARIN SODIUM
  18. VENOFER [Concomitant]
     Active Substance: IRON SUCROSE
  19. CARDIZEM CD [Concomitant]
     Active Substance: DILTIAZEM HYDROCHLORIDE
  20. PROHANCE [Suspect]
     Active Substance: GADOTERIDOL
     Indication: PRODUCT USED FOR UNKNOWN INDICATION
     Dosage: , SINGLE
     Dates: start: 20060720, end: 20060720
  21. LEVOCARNITINE. [Concomitant]
     Active Substance: LEVOCARNITINE
  22. ARANESP [Concomitant]
     Active Substance: DARBEPOETIN ALFA
  23. MAGNEVIST [Suspect]
     Active Substance: GADOPENTETATE DIMEGLUMINE
     Dosage: 30 MILLIGRAM/MILLILITERS, SINGLE
     Dates: start: 20040726, end: 20040726
  24. NEURONTIN [Concomitant]
     Active Substance: GABAPENTIN
  25. PHOSLO [Concomitant]
     Active Substance: CALCIUM ACETATE
  26. RENAPHRO [Concomitant]

REACTIONS (1)
  - Nephrogenic systemic fibrosis [Not Recovered/Not Resolved]

NARRATIVE: CASE EVENT DATE: 20070401
